FAERS Safety Report 23743006 (Version 1)
Quarter: 2024Q2

REPORT INFORMATION
  Report Type: Spontaneous
  Country: SE (occurrence: SE)
  Receive Date: 20240415
  Receipt Date: 20240415
  Transmission Date: 20240716
  Serious: Yes (Hospitalization)
  Sender: FDA-Public Use
  Company Number: SE-MYLANLABS-2024M1033026

PATIENT
  Age: 45 Year
  Sex: Female

DRUGS (2)
  1. PROMETHAZINE HYDROCHLORIDE\THIOUREA [Suspect]
     Active Substance: PROMETHAZINE HYDROCHLORIDE\THIOUREA
     Indication: Sleep disorder
     Dosage: 25 MILLIGRAM, QD (0-2 PER DAY)
     Route: 065
     Dates: start: 20231229
  2. PROMETHAZINE HYDROCHLORIDE\THIOUREA [Suspect]
     Active Substance: PROMETHAZINE HYDROCHLORIDE\THIOUREA
     Indication: Pruritus

REACTIONS (1)
  - Hospitalisation [Unknown]
